FAERS Safety Report 8622929-0 (Version None)
Quarter: 2012Q3

REPORT INFORMATION
  Report Type: 
  Country: None (occurrence: None)
  Receive Date: 20120827
  Receipt Date: 20120823
  Transmission Date: 20120928
  Serious: Yes (Other)
  Sender: FDA-Public Use
  Company Number: PHHY2012NL013619

PATIENT
  Sex: Female

DRUGS (1)
  1. TEGRETOL [Suspect]
     Dosage: 400 MG, BID
     Dates: start: 19810101

REACTIONS (15)
  - OSTEOPOROSIS [None]
  - EPILEPSY [None]
  - AMNESIA [None]
  - ALOPECIA [None]
  - HYPERTENSION [None]
  - THYROID DISORDER [None]
  - BLOOD CHOLESTEROL INCREASED [None]
  - MUSCULOSKELETAL STIFFNESS [None]
  - MUSCULAR DYSTROPHY [None]
  - GAIT DISTURBANCE [None]
  - PARALYSIS [None]
  - FEELING ABNORMAL [None]
  - BONE DENSITY DECREASED [None]
  - SPEECH DISORDER [None]
  - INTRAOCULAR PRESSURE INCREASED [None]
